FAERS Safety Report 9269696 (Version 1)
Quarter: 2013Q2

REPORT INFORMATION
  Report Type: Spontaneous
  Country: US (occurrence: US)
  Receive Date: 20130503
  Receipt Date: 20130503
  Transmission Date: 20140414
  Serious: No
  Sender: FDA-Public Use
  Company Number: US-009507513-1304USA016467

PATIENT
  Age: 16 Year
  Sex: Female
  Weight: 82.54 kg

DRUGS (2)
  1. IMPLANON [Suspect]
     Indication: MENSTRUAL CYCLE MANAGEMENT
     Dosage: 1 ROD FOR 3 YEARS
     Route: 059
     Dates: start: 20110519
  2. DIVALPROEX SODIUM [Concomitant]

REACTIONS (4)
  - Menorrhagia [Unknown]
  - Amenorrhoea [Unknown]
  - Menstrual disorder [Unknown]
  - Device expulsion [Unknown]
